FAERS Safety Report 5418116-X (Version None)
Quarter: 2007Q3

REPORT INFORMATION
  Report Type: 
  Country: None (occurrence: None)
  Receive Date: 20070817
  Receipt Date: 20070806
  Transmission Date: 20080115
  Serious: Yes (Hospitalization)
  Sender: FDA-Public Use
  Company Number: US-GENENTECH-244738

PATIENT
  Sex: Male
  Weight: 79.365 kg

DRUGS (3)
  1. RAPTIVA [Suspect]
     Indication: PSORIASIS
     Dosage: UNK, 1/WEEK
     Route: 058
  2. RAPTIVA [Suspect]
     Dosage: 125 MG, Q2W
     Route: 058
  3. RAPTIVA [Suspect]
     Dosage: 90 MG, Q2W
     Route: 058
     Dates: start: 20040401

REACTIONS (3)
  - CHOLELITHIASIS [None]
  - NEPHROLITHIASIS [None]
  - PSORIASIS [None]
